FAERS Safety Report 18324964 (Version 1)
Quarter: 2020Q3

REPORT INFORMATION
  Report Type: Spontaneous
  Country: US (occurrence: US)
  Receive Date: 20200929
  Receipt Date: 20200929
  Transmission Date: 20201103
  Serious: No
  Sender: FDA-Public Use
  Company Number: US-PFIZER INC-2020371845

PATIENT
  Age: 90 Year
  Sex: Female

DRUGS (1)
  1. IBRANCE [Suspect]
     Active Substance: PALBOCICLIB
     Dosage: 125 MG, CYCLIC (QD X 21 DAYS, Q 28 DAYS)
     Dates: start: 20200708

REACTIONS (2)
  - Visual impairment [Unknown]
  - Rash macular [Unknown]

NARRATIVE: CASE EVENT DATE: 2020
